FAERS Safety Report 11230253 (Version 24)
Quarter: 2017Q3

REPORT INFORMATION
  Report Type: Report from Study
  Country: CA (occurrence: CA)
  Receive Date: 20150701
  Receipt Date: 20170901
  Transmission Date: 20171127
  Serious: Yes (Death, Other)
  Sender: FDA-Public Use
  Company Number: PHHY2013CA043038

PATIENT
  Age: 80 Year
  Sex: Male

DRUGS (6)
  1. SANDOSTATIN LAR DEPOT [Suspect]
     Active Substance: OCTREOTIDE ACETATE
     Indication: NEUROENDOCRINE TUMOUR
     Dosage: 20 MG, QMO
     Route: 030
     Dates: start: 20130215, end: 20130423
  2. SANDOSTATIN LAR DEPOT [Suspect]
     Active Substance: OCTREOTIDE ACETATE
     Dosage: 40 MG, QMO (EVERY 4 WEEKS)
     Route: 030
     Dates: start: 20130814
  3. FUROSEMIDE. [Concomitant]
     Active Substance: FUROSEMIDE
     Indication: PRODUCT USED FOR UNKNOWN INDICATION
     Dosage: 40 MG, QD
     Route: 065
     Dates: start: 20170328
  4. AFINITOR [Suspect]
     Active Substance: EVEROLIMUS
     Indication: NEUROENDOCRINE TUMOUR
     Dosage: 10 MG, QD
     Route: 048
     Dates: start: 20170601
  5. SANDOSTATIN LAR DEPOT [Suspect]
     Active Substance: OCTREOTIDE ACETATE
     Dosage: 30 MG, QMO (EVERY 4 WEEKS )
     Route: 030
     Dates: start: 20130521, end: 20130716
  6. SPIRONOLACTONE. [Concomitant]
     Active Substance: SPIRONOLACTONE
     Indication: PRODUCT USED FOR UNKNOWN INDICATION
     Dosage: 25 MG, BID
     Route: 065
     Dates: start: 20170328

REACTIONS (35)
  - Arthralgia [Unknown]
  - Tendonitis [Unknown]
  - Oedema peripheral [Not Recovered/Not Resolved]
  - Drug effect decreased [Unknown]
  - Renal neoplasm [Unknown]
  - Depressed mood [Unknown]
  - Eye disorder [Unknown]
  - Blood glucose increased [Unknown]
  - Blood pressure systolic decreased [Unknown]
  - Blood potassium decreased [Recovering/Resolving]
  - Faeces hard [Unknown]
  - Blood pressure systolic increased [Recovering/Resolving]
  - Fluid retention [Unknown]
  - Weight decreased [Unknown]
  - Abdominal pain upper [Unknown]
  - Rash [Unknown]
  - Diarrhoea [Recovering/Resolving]
  - Death [Fatal]
  - Deafness [Unknown]
  - Metastases to heart [Unknown]
  - Cardiac disorder [Unknown]
  - Stress [Unknown]
  - Mass [Unknown]
  - Excessive cerumen production [Not Recovered/Not Resolved]
  - Peripheral swelling [Recovering/Resolving]
  - Frequent bowel movements [Recovering/Resolving]
  - Heart rate decreased [Unknown]
  - Malignant neoplasm progression [Unknown]
  - Blood pressure increased [Unknown]
  - Heart valve incompetence [Unknown]
  - Furuncle [Unknown]
  - Musculoskeletal pain [Recovering/Resolving]
  - Blood pressure decreased [Unknown]
  - Flatulence [Unknown]
  - Needle issue [Unknown]

NARRATIVE: CASE EVENT DATE: 20130423
